FAERS Safety Report 16159618 (Version 1)
Quarter: 2019Q2

REPORT INFORMATION
  Report Type: Spontaneous
  Country: US (occurrence: US)
  Receive Date: 20190404
  Receipt Date: 20190404
  Transmission Date: 20190711
  Serious: No
  Sender: FDA-Public Use
  Company Number: US-SA-2019SA092369

PATIENT
  Sex: Female

DRUGS (9)
  1. KEVZARA [Suspect]
     Active Substance: SARILUMAB
     Dosage: 200 MG, QOW
     Route: 058
     Dates: start: 201903
  2. NAPROXEN. [Concomitant]
     Active Substance: NAPROXEN
  3. PREDNISONE. [Concomitant]
     Active Substance: PREDNISONE
  4. NEXIUM I.V. [Concomitant]
     Active Substance: ESOMEPRAZOLE SODIUM
  5. RALOXIFENE. [Concomitant]
     Active Substance: RALOXIFENE
  6. TEMAZEPAM. [Concomitant]
     Active Substance: TEMAZEPAM
  7. LIDOCAINE. [Concomitant]
     Active Substance: LIDOCAINE
  8. TRAVATAN Z [Concomitant]
     Active Substance: TRAVOPROST
  9. FLUTICASONE. [Concomitant]
     Active Substance: FLUTICASONE

REACTIONS (3)
  - Nerve compression [Not Recovered/Not Resolved]
  - Arthralgia [Not Recovered/Not Resolved]
  - Loss of personal independence in daily activities [Not Recovered/Not Resolved]
